FAERS Safety Report 8272481-7 (Version None)
Quarter: 2012Q2

REPORT INFORMATION
  Report Type: 
  Country: None (occurrence: None)
  Receive Date: 20120410
  Receipt Date: 20110928
  Transmission Date: 20120825
  Serious: No
  Sender: FDA-Public Use
  Company Number: US-ASTRAZENECA-2011SE33847

PATIENT

DRUGS (1)
  1. NEXIUM IV [Suspect]
     Route: 042
     Dates: start: 20110601

REACTIONS (2)
  - OEDEMA PERIPHERAL [None]
  - INCORRECT ROUTE OF DRUG ADMINISTRATION [None]
